FAERS Safety Report 6827074-2 (Version None)
Quarter: 2010Q3

REPORT INFORMATION
  Report Type: 
  Country: None (occurrence: None)
  Receive Date: 20100709
  Receipt Date: 20100629
  Transmission Date: 20110219
  Serious: Yes (Other)
  Sender: FDA-Public Use
  Company Number: CA-JNJFOC-20100700992

PATIENT
  Sex: Male
  Weight: 111 kg

DRUGS (8)
  1. REMICADE [Suspect]
     Indication: PRODUCT USED FOR UNKNOWN INDICATION
     Route: 042
  2. CLONAZEPAM [Concomitant]
  3. CIPRO [Concomitant]
  4. CITALOPRAM HYDROBROMIDE [Concomitant]
  5. BENZTROPINE MESYLATE [Concomitant]
  6. QUETIAPINE FUMARATE [Concomitant]
  7. TYLENOL [Concomitant]
  8. BENADRYL [Concomitant]
     Indication: PREMEDICATION
     Dosage: 2ND INFUSION

REACTIONS (4)
  - ANXIETY [None]
  - HYPOAESTHESIA [None]
  - MALAISE [None]
  - RESPIRATORY DISORDER [None]
